FAERS Safety Report 5442058-7 (Version None)
Quarter: 2007Q3

REPORT INFORMATION
  Report Type: 
  Country: None (occurrence: None)
  Receive Date: 20070904
  Receipt Date: 20070904
  Transmission Date: 20080115
  Serious: Yes (Other)
  Sender: FDA-Public Use
  Company Number: A0677930A

PATIENT
  Age: 54 Year
  Sex: Female

DRUGS (1)
  1. ALLI [Suspect]
     Route: 048
     Dates: start: 20070830, end: 20070830

REACTIONS (5)
  - ABDOMINAL PAIN UPPER [None]
  - DEFAECATION URGENCY [None]
  - DIARRHOEA [None]
  - FAECAL INCONTINENCE [None]
  - FAECAL VOLUME INCREASED [None]
